FAERS Safety Report 10458663 (Version 1)
Quarter: 2014Q3

REPORT INFORMATION
  Report Type: Spontaneous
  Country: US (occurrence: None)
  Receive Date: 20140916
  Receipt Date: 20140916
  Transmission Date: 20150326
  Serious: Yes (Life-Threatening, Hospitalization, Disabling)
  Sender: FDA-Public Use
  Company Number: None

PATIENT
  Age: 54 Year
  Sex: Female
  Weight: 90.27 kg

DRUGS (1)
  1. AVONEX [Suspect]
     Active Substance: INTERFERON BETA-1A
     Indication: RELAPSING-REMITTING MULTIPLE SCLEROSIS

REACTIONS (8)
  - Loss of consciousness [None]
  - Blood pressure decreased [None]
  - Cholelithiasis [None]
  - Tooth extraction [None]
  - Nephrolithiasis [None]
  - Hypokalaemia [None]
  - Intervertebral disc protrusion [None]
  - Vaginal cyst [None]
